FAERS Safety Report 20382752 (Version 14)
Quarter: 2024Q3

REPORT INFORMATION
  Report Type: Report from Study
  Country: ZA (occurrence: ZA)
  Receive Date: 20220127
  Receipt Date: 20240925
  Transmission Date: 20241016
  Serious: Yes (Hospitalization, Other)
  Sender: ROCHE
  Company Number: ZA-ROCHE-3004399

PATIENT
  Age: 34 Year
  Sex: Female

DRUGS (7)
  1. ACTEMRA [Suspect]
     Active Substance: TOCILIZUMAB
     Indication: Rheumatoid arthritis
     Route: 058
     Dates: start: 20211006
  2. ACTEMRA [Suspect]
     Active Substance: TOCILIZUMAB
     Indication: Takayasu^s arteritis
     Route: 058
  3. ACTEMRA [Suspect]
     Active Substance: TOCILIZUMAB
     Route: 058
  4. ACTEMRA [Suspect]
     Active Substance: TOCILIZUMAB
     Route: 058
  5. ACTEMRA [Suspect]
     Active Substance: TOCILIZUMAB
     Route: 058
  6. ACTEMRA [Suspect]
     Active Substance: TOCILIZUMAB
     Route: 058
  7. OZEMPIC [Suspect]
     Active Substance: SEMAGLUTIDE
     Indication: Product used for unknown indication
     Dosage: UNKNOWN
     Route: 065

REACTIONS (24)
  - Gastrointestinal disorder [Unknown]
  - Abdominal discomfort [Unknown]
  - Seizure [Unknown]
  - Nausea [Recovering/Resolving]
  - Vomiting [Recovering/Resolving]
  - Abdominal pain [Recovering/Resolving]
  - Muscle spasms [Recovering/Resolving]
  - Seizure [Unknown]
  - Ill-defined disorder [Unknown]
  - Abdominal rigidity [Unknown]
  - Myoclonus [Unknown]
  - Mesenteric artery stenosis [Unknown]
  - Headache [Recovering/Resolving]
  - Oesophagogastroscopy [Unknown]
  - Colonoscopy [Unknown]
  - Angiogram [Unknown]
  - Ultrasound liver [Unknown]
  - Gait disturbance [Unknown]
  - Cognitive disorder [Unknown]
  - Gastritis [Unknown]
  - Hypophagia [Unknown]
  - Off label use [Unknown]
  - Alanine aminotransferase increased [Unknown]
  - Aspartate aminotransferase increased [Unknown]

NARRATIVE: CASE EVENT DATE: 20220112
